FAERS Safety Report 14126813 (Version 3)
Quarter: 2017Q4

REPORT INFORMATION
  Report Type: Spontaneous
  Country: UA (occurrence: UA)
  Receive Date: 20171025
  Receipt Date: 20171114
  Transmission Date: 20180321
  Serious: Yes (Other)
  Sender: FDA-Public Use
  Company Number: UA-ASTRAZENECA-2017SF08550

PATIENT
  Age: 23568 Day
  Sex: Male

DRUGS (3)
  1. ROSUVASTATIN. [Concomitant]
     Active Substance: ROSUVASTATIN
  2. BRILINTA [Suspect]
     Active Substance: TICAGRELOR
     Indication: MYOCARDIAL INFARCTION
     Dosage: 90.0MG UNKNOWN
     Route: 048
     Dates: start: 20170809
  3. ROSUVASTATIN. [Concomitant]
     Active Substance: ROSUVASTATIN

REACTIONS (5)
  - Coronary artery stenosis [Unknown]
  - Coronary artery thrombosis [Unknown]
  - Blood cholesterol increased [Unknown]
  - Coronary artery occlusion [Unknown]
  - Vascular stent thrombosis [Recovering/Resolving]

NARRATIVE: CASE EVENT DATE: 20171017
